FAERS Safety Report 24189236 (Version 1)
Quarter: 2024Q3

REPORT INFORMATION
  Report Type: Spontaneous
  Country: US (occurrence: US)
  Receive Date: 20240808
  Receipt Date: 20240808
  Transmission Date: 20241016
  Serious: No
  Sender: APOTEX
  Company Number: US-APOTEX-2024AP009021

PATIENT
  Age: 83 Year
  Sex: Female

DRUGS (3)
  1. IMIQUIMOD [Suspect]
     Active Substance: IMIQUIMOD
     Indication: Acral lentiginous melanoma
     Dosage: UNK
     Route: 065
  2. IMIQUIMOD [Suspect]
     Active Substance: IMIQUIMOD
     Dosage: UNK
     Route: 065
  3. TRETINOIN [Suspect]
     Active Substance: TRETINOIN
     Indication: Acral lentiginous melanoma
     Dosage: UNK
     Route: 065

REACTIONS (1)
  - Inflammation [Unknown]
